FAERS Safety Report 10313871 (Version 1)
Quarter: 2014Q3

REPORT INFORMATION
  Report Type: Spontaneous
  Country: US (occurrence: None)
  Receive Date: 20140716
  Receipt Date: 20140716
  Transmission Date: 20150326
  Serious: Yes (Other)
  Sender: FDA-Public Use
  Company Number: MAJOR 2014230

PATIENT
  Sex: Female

DRUGS (2)
  1. POVIDONE IODINE [Suspect]
     Active Substance: POVIDONE-IODINE
     Indication: POSTOPERATIVE CARE
     Route: 061
     Dates: start: 20140630, end: 20140708
  2. POVIDONE IODINE [Suspect]
     Active Substance: POVIDONE-IODINE
     Route: 061
     Dates: start: 20140630, end: 20140708

REACTIONS (9)
  - Procedural complication [None]
  - Eczema [None]
  - Scar [None]
  - Pruritus [None]
  - Dermatitis [None]
  - Dermatitis contact [None]
  - Skin exfoliation [None]
  - Erythema [None]
  - Skin disorder [None]
